FAERS Safety Report 12549540 (Version 1)
Quarter: 2016Q3

REPORT INFORMATION
  Report Type: Spontaneous
  Country: US (occurrence: US)
  Receive Date: 20160712
  Receipt Date: 20160712
  Transmission Date: 20161109
  Serious: Yes (Other)
  Sender: FDA-Public Use
  Company Number: US-BAYER-2016-130445

PATIENT
  Sex: Male

DRUGS (3)
  1. BACTRIM [Concomitant]
     Active Substance: SULFAMETHOXAZOLE\TRIMETHOPRIM
  2. KEFLEX [Concomitant]
     Active Substance: CEPHALEXIN
     Dosage: 500 MG
  3. CIPRO [Suspect]
     Active Substance: CIPROFLOXACIN HYDROCHLORIDE
     Dosage: 250 MG, BID (TWICE A DAY)

REACTIONS (14)
  - Amnesia [Unknown]
  - Dizziness [Unknown]
  - Joint swelling [None]
  - Muscle tightness [Unknown]
  - Balance disorder [Unknown]
  - Dysarthria [Unknown]
  - Asthenia [Unknown]
  - Arthralgia [Unknown]
  - Rash macular [Unknown]
  - Hallucination, auditory [Unknown]
  - Fall [Unknown]
  - Anger [Unknown]
  - Peripheral swelling [Unknown]
  - Nausea [Unknown]
